FAERS Safety Report 9957780 (Version 2)
Quarter: 2014Q1

REPORT INFORMATION
  Report Type: Report from Study
  Country: US (occurrence: US)
  Receive Date: 20140304
  Receipt Date: 20140304
  Transmission Date: 20141002
  Serious: No
  Sender: FDA-Public Use
  Company Number: US-ABBVIE-13P-163-1054280-00

PATIENT
  Age: 66 Year
  Sex: Male

DRUGS (7)
  1. HUMIRA [Suspect]
     Indication: COLITIS ULCERATIVE
     Dosage: LOADING DOSE
     Dates: start: 20130214, end: 20130214
  2. HUMIRA [Suspect]
     Dates: start: 20130214
  3. CLARITIN [Concomitant]
     Indication: SINUS DISORDER
     Dosage: 10 MG DAILY
  4. LISINOPRIL [Concomitant]
     Indication: HYPERTENSION
     Dosage: 20 MG DAILY
  5. NORVASC [Concomitant]
     Indication: HYPERTENSION
     Dosage: 5 MG DAILY
  6. PAXIL [Concomitant]
     Indication: DEPRESSION
     Dosage: 30 MG DAILY
  7. PAXIL [Concomitant]
     Indication: ANXIETY

REACTIONS (3)
  - Abdominal pain [Not Recovered/Not Resolved]
  - Haemorrhage [Not Recovered/Not Resolved]
  - Diarrhoea [Not Recovered/Not Resolved]
